FAERS Safety Report 22628637 (Version 1)
Quarter: 2023Q2

REPORT INFORMATION
  Report Type: Spontaneous
  Country: US (occurrence: None)
  Receive Date: 20230621
  Receipt Date: 20230621
  Transmission Date: 20230721
  Serious: Yes (Death, Hospitalization)
  Sender: FDA-Public Use
  Company Number: None

PATIENT
  Age: 67 Year
  Sex: Male
  Weight: 91.7 kg

DRUGS (2)
  1. VENETOCLAX [Suspect]
     Active Substance: VENETOCLAX
     Indication: Myelodysplastic syndrome
     Dosage: FREQUENCY : DAILY;?
     Route: 048
     Dates: start: 20230410, end: 20230522
  2. AZACITIDINE [Concomitant]
     Active Substance: AZACITIDINE
     Dates: start: 20230410, end: 20230522

REACTIONS (13)
  - Myelodysplastic syndrome [None]
  - Muscular weakness [None]
  - Fall [None]
  - Thrombocytopenia [None]
  - Cerebral artery embolism [None]
  - Infarction [None]
  - Transfusion [None]
  - Platelet transfusion [None]
  - Febrile neutropenia [None]
  - Coronary artery stenosis [None]
  - Transfusion reaction [None]
  - Embolic stroke [None]
  - Respiratory failure [None]

NARRATIVE: CASE EVENT DATE: 20230603
